FAERS Safety Report 26011243 (Version 1)
Quarter: 2025Q4

REPORT INFORMATION
  Report Type: Spontaneous
  Country: GB (occurrence: GB)
  Receive Date: 20251107
  Receipt Date: 20251107
  Transmission Date: 20260118
  Serious: Yes (Other)
  Sender: BAYER HEALTHCARE PHARMACEUTICALS INC.
  Company Number: None

PATIENT
  Age: 74 Year
  Sex: Female
  Weight: 54 kg

DRUGS (4)
  1. MOXIFLOXACIN [Suspect]
     Active Substance: MOXIFLOXACIN
     Indication: Pseudomonas infection
     Dosage: 400 MG, BID
     Route: 048
     Dates: start: 20251001, end: 20251015
  2. CIPROFLOXACIN [Suspect]
     Active Substance: CIPROFLOXACIN
     Indication: Pseudomonas infection
     Dosage: UNK
  3. CARBOCYSTEINE [Concomitant]
     Active Substance: CARBOCYSTEINE
     Indication: Bronchiectasis
     Dosage: UNK
  4. FLECAINIDE [Concomitant]
     Active Substance: FLECAINIDE
     Indication: Bronchiectasis
     Dosage: UNK

REACTIONS (5)
  - Confusional state [Recovered/Resolved with Sequelae]
  - Fear-related avoidance of activities [Recovering/Resolving]
  - Arthritis [Not Recovered/Not Resolved]
  - Psychiatric symptom [None]
  - Therapeutic product effect incomplete [None]

NARRATIVE: CASE EVENT DATE: 20251010
